FAERS Safety Report 5161095-3 (Version None)
Quarter: 2006Q4

REPORT INFORMATION
  Report Type: 
  Country: None (occurrence: None)
  Receive Date: 20061121
  Receipt Date: 20061108
  Transmission Date: 20070319
  Serious: Yes (Hospitalization)
  Sender: FDA-Public Use
  Company Number: 15149

PATIENT
  Age: 71 Year
  Sex: Male
  Weight: 102 kg

DRUGS (12)
  1. DACARBAZINE [Suspect]
     Indication: MALIGNANT MELANOMA STAGE IV
     Dosage: 2100 MG IV
     Route: 042
     Dates: start: 20061024
  2. BOSENTAN 500 MG BID OR PLACEBO [Suspect]
     Indication: MALIGNANT MELANOMA STAGE IV
     Dosage: 500 MG BID PO
     Route: 048
     Dates: start: 20061024
  3. ONDANSETRON HCL [Concomitant]
  4. DEXAMETHASONE [Concomitant]
  5. OMEPRAZOLE [Concomitant]
  6. DURAGESIC-100 [Concomitant]
  7. OXYCODONE HCL [Concomitant]
  8. RAMIPRIL [Concomitant]
  9. FLUTICASONE W/SALMETEROL [Concomitant]
  10. ACETAMINOPHEN [Concomitant]
  11. MOCLOBEMIDE [Concomitant]
  12. PARAFFIN, LIQUID [Concomitant]

REACTIONS (2)
  - DEHYDRATION [None]
  - PNEUMONIA [None]
